FAERS Safety Report 7553029-9 (Version None)
Quarter: 2011Q2

REPORT INFORMATION
  Report Type: 
  Country: None (occurrence: None)
  Receive Date: 20110616
  Receipt Date: 20110601
  Transmission Date: 20111010
  Serious: Yes (Other)
  Sender: FDA-Public Use
  Company Number: US-BAYER-2011-047890

PATIENT
  Sex: Male

DRUGS (3)
  1. DOMEBORO [Suspect]
     Indication: DERMATITIS CONTACT
     Dosage: 1 DF, UNK
     Route: 061
     Dates: start: 20110530, end: 20110531
  2. AVEENO BATH [Concomitant]
  3. ANTIBIOTICS [Concomitant]

REACTIONS (6)
  - RASH [None]
  - DERMATITIS BULLOUS [None]
  - RASH PUSTULAR [None]
  - RASH ERYTHEMATOUS [None]
  - INFLAMMATION [None]
  - DERMATITIS [None]
